FAERS Safety Report 6004048-5 (Version None)
Quarter: 2008Q4

REPORT INFORMATION
  Report Type: 
  Country: None (occurrence: None)
  Receive Date: 20081216
  Receipt Date: 20081211
  Transmission Date: 20090506
  Serious: Yes (Hospitalization)
  Sender: FDA-Public Use
  Company Number: B0546913A

PATIENT
  Age: 58 Year
  Sex: Male
  Weight: 60 kg

DRUGS (3)
  1. VALTREX [Suspect]
     Indication: HERPES ZOSTER
     Route: 048
     Dates: start: 20081104, end: 20081108
  2. ANCORON [Concomitant]
     Dosage: 100MG PER DAY
     Route: 048
  3. WARFARIN SODIUM [Concomitant]
     Dosage: 1.5MG PER DAY
     Route: 048

REACTIONS (4)
  - DYSARTHRIA [None]
  - ENCEPHALOPATHY [None]
  - HALLUCINATION [None]
  - OVERDOSE [None]
